FAERS Safety Report 24156463 (Version 1)
Quarter: 2024Q3

REPORT INFORMATION
  Report Type: Spontaneous
  Country: US (occurrence: None)
  Receive Date: 20240730
  Receipt Date: 20240730
  Transmission Date: 20241017
  Serious: Yes (Hospitalization)
  Sender: Public
  Company Number: None

PATIENT
  Sex: Male

DRUGS (2)
  1. PALFORZIA [Suspect]
     Active Substance: PEANUT
     Indication: Food allergy
     Dosage: 300 MG DAILY ORAL?
     Route: 048
  2. EPINEPHRINE 0.3MG INJ 2 PACK [Concomitant]

REACTIONS (2)
  - Treatment failure [None]
  - Anaphylactic reaction [None]
